FAERS Safety Report 13791751 (Version 2)
Quarter: 2017Q3

REPORT INFORMATION
  Report Type: Report from Study
  Country: US (occurrence: BR)
  Receive Date: 20170725
  Receipt Date: 20170929
  Transmission Date: 20171127
  Serious: Yes (Death, Other)
  Sender: FDA-Public Use
  Company Number: US-SUNOVION-2017SUN003222

PATIENT
  Sex: Female

DRUGS (2)
  1. INDACATEROL [Suspect]
     Active Substance: INDACATEROL
     Indication: ASTHMA
     Dosage: 1 DF, QD
     Route: 065
  2. INDACATEROL [Suspect]
     Active Substance: INDACATEROL
     Indication: LUNG DISORDER

REACTIONS (5)
  - Renal failure [Fatal]
  - Cardiac failure [Fatal]
  - Malaise [Unknown]
  - Speech disorder [Unknown]
  - Product use in unapproved indication [Unknown]
